FAERS Safety Report 9882658 (Version 2)
Quarter: 2014Q2

REPORT INFORMATION
  Report Type: Spontaneous
  Country: US (occurrence: US)
  Receive Date: 20140207
  Receipt Date: 20140424
  Transmission Date: 20141212
  Serious: No
  Sender: FDA-Public Use
  Company Number: US-GILEAD-2014-0093894

PATIENT
  Age: 36 Year
  Sex: Female

DRUGS (10)
  1. LETAIRIS [Suspect]
     Indication: PULMONARY HYPERTENSION
     Dosage: 5 MG, QD
     Route: 048
     Dates: start: 20131207, end: 20131231
  2. REVATIO [Concomitant]
  3. SOTALOL [Concomitant]
  4. SPIRONOLACTONE [Concomitant]
  5. DIGOXIN [Concomitant]
  6. WARFARIN [Concomitant]
  7. FUROSEMIDE [Concomitant]
  8. MAGNESIUM OXIDE [Concomitant]
  9. OXYCODONE/APAP                     /00867901/ [Concomitant]
  10. ASA [Concomitant]
     Dosage: UNK UNK, QD

REACTIONS (3)
  - Quality of life decreased [Recovered/Resolved]
  - Oedema peripheral [Recovered/Resolved]
  - Weight increased [Recovered/Resolved]
